FAERS Safety Report 8330597-0 (Version None)
Quarter: 2012Q2

REPORT INFORMATION
  Report Type: 
  Country: None (occurrence: None)
  Receive Date: 20120502
  Receipt Date: 20120405
  Transmission Date: 20120825
  Serious: No
  Sender: FDA-Public Use
  Company Number: US-AMGEN-USASP2012020603

PATIENT
  Age: 6 Year
  Sex: Female

DRUGS (1)
  1. ENBREL [Suspect]
     Indication: JUVENILE ARTHRITIS
     Dosage: 25 MG, QWK
     Dates: start: 20110622

REACTIONS (7)
  - CONVERSION DISORDER [None]
  - PAROSMIA [None]
  - GASTROENTERITIS VIRAL [None]
  - SINUSITIS [None]
  - INFLUENZA [None]
  - VOMITING [None]
  - ANXIETY [None]
